FAERS Safety Report 7959363-2 (Version None)
Quarter: 2011Q4

REPORT INFORMATION
  Report Type: 
  Country: None (occurrence: None)
  Receive Date: 20111206
  Receipt Date: 20111125
  Transmission Date: 20120403
  Serious: Yes (Death, Hospitalization)
  Sender: FDA-Public Use
  Company Number: FR-PFIZER INC-2011266115

PATIENT
  Age: 70 Year
  Sex: Male
  Weight: 56 kg

DRUGS (5)
  1. RAMIPRIL [Concomitant]
     Indication: HYPERTENSION
     Dosage: 5 MG, 1X/DAY
     Route: 048
     Dates: start: 20060101, end: 20111018
  2. INVESTIGATIONAL DRUG [Suspect]
     Indication: NEOPLASM MALIGNANT
     Dosage: 1 DF, 2X/DAY
     Route: 048
     Dates: start: 20110726, end: 20111018
  3. TINZAPARIN SODIUM [Concomitant]
     Indication: ARRHYTHMIA
     Dosage: 14000 IU, 1X/DAY
     Route: 058
     Dates: start: 20101101
  4. AMLODIPINE [Suspect]
     Indication: HYPERTENSION
     Dosage: 5 MG, 2X/DAY
     Route: 048
     Dates: start: 20060101, end: 20111010
  5. AMIODARONE HCL [Suspect]
     Indication: ARRHYTHMIA
     Dosage: 200 MG, DAILY
     Route: 048
     Dates: start: 20060201, end: 20111010

REACTIONS (4)
  - INFECTION [None]
  - DRUG INTERACTION [None]
  - DIARRHOEA [None]
  - DEHYDRATION [None]
